FAERS Safety Report 10434339 (Version 5)
Quarter: 2015Q4

REPORT INFORMATION
  Report Type: Spontaneous
  Country: JP (occurrence: JP)
  Receive Date: 20140905
  Receipt Date: 20151119
  Transmission Date: 20160304
  Serious: Yes (Other)
  Sender: FDA-Public Use
  Company Number: PHHY2014JP112689

PATIENT
  Age: 36 Year
  Sex: Female

DRUGS (5)
  1. HYDROCORTISONE SODIUM [Concomitant]
     Indication: MIXED CONNECTIVE TISSUE DISEASE
     Dosage: 200 G, QD
     Route: 065
  2. CICLOSPORIN [Suspect]
     Active Substance: CYCLOSPORINE
     Indication: MIXED CONNECTIVE TISSUE DISEASE
     Dosage: 75 MG, UNK
     Route: 048
     Dates: start: 201310
  3. HYDROCORTISONE SODIUM [Concomitant]
     Dosage: 100 G, QD
     Route: 065
  4. METHYLPREDNISOLONE. [Concomitant]
     Active Substance: METHYLPREDNISOLONE
     Indication: MIXED CONNECTIVE TISSUE DISEASE
     Dosage: 8 MG, UNK
     Route: 065
  5. FUSIDATE SODIUM [Concomitant]
     Active Substance: FUSIDATE SODIUM
     Indication: SKIN ULCER
     Dosage: UNK
     Route: 065
     Dates: start: 201310

REACTIONS (10)
  - Toxic shock syndrome [Unknown]
  - Necrotising fasciitis [Unknown]
  - Streptococcal infection [Unknown]
  - Swelling [Unknown]
  - Altered state of consciousness [Unknown]
  - Restlessness [Unknown]
  - Product use issue [Unknown]
  - Blister [Unknown]
  - Pain in extremity [Unknown]
  - Skin ulcer [Unknown]
